FAERS Safety Report 9337513 (Version 4)
Quarter: 2014Q1

REPORT INFORMATION
  Report Type: Report from Study
  Country: US (occurrence: US)
  Receive Date: 20130607
  Receipt Date: 20140224
  Transmission Date: 20141002
  Serious: Yes (Hospitalization)
  Sender: FDA-Public Use
  Company Number: US-ACTELION-A-NJ2013-83662

PATIENT
  Age: 45 Year
  Sex: Male

DRUGS (3)
  1. VELETRI [Suspect]
     Indication: PULMONARY ARTERIAL HYPERTENSION
     Dosage: 16 NG/KG, PER MIN
     Route: 042
     Dates: start: 20130222
  2. SILDENAFIL [Concomitant]
  3. COUMADIN [Concomitant]

REACTIONS (6)
  - Cholecystitis [Not Recovered/Not Resolved]
  - Abdominal pain [Not Recovered/Not Resolved]
  - Nausea [Not Recovered/Not Resolved]
  - Vomiting [Not Recovered/Not Resolved]
  - Infection [Not Recovered/Not Resolved]
  - Suture related complication [Recovered/Resolved]
